FAERS Safety Report 24301044 (Version 1)
Quarter: 2024Q3

REPORT INFORMATION
  Report Type: Spontaneous
  Country: CN (occurrence: CN)
  Receive Date: 20240910
  Receipt Date: 20240910
  Transmission Date: 20241016
  Serious: Yes (Other)
  Sender: ROCHE
  Company Number: CN-ROCHE-10000073443

PATIENT
  Age: 46 Year
  Sex: Female
  Weight: 63 kg

DRUGS (1)
  1. MYCOPHENOLATE MOFETIL [Suspect]
     Active Substance: MYCOPHENOLATE MOFETIL
     Indication: Systemic lupus erythematosus
     Dosage: REASON FOR TREATMENT : ETIOLOGICAL TREATMENT.
     Route: 048
     Dates: start: 20240614, end: 20240806

REACTIONS (3)
  - Off label use [Unknown]
  - Arthralgia [Unknown]
  - Rash maculo-papular [Recovering/Resolving]

NARRATIVE: CASE EVENT DATE: 20240806
